FAERS Safety Report 24027498 (Version 1)
Quarter: 2024Q2

REPORT INFORMATION
  Report Type: Report from Study
  Country: US (occurrence: US)
  Receive Date: 20240628
  Receipt Date: 20240628
  Transmission Date: 20240716
  Serious: Yes (Hospitalization)
  Sender: FDA-Public Use
  Company Number: US-TEVA-VS-3213036

PATIENT
  Age: 16 Year
  Sex: Male
  Weight: 93.1 kg

DRUGS (8)
  1. METHOTREXATE [Suspect]
     Active Substance: METHOTREXATE
     Indication: Acute lymphocytic leukaemia
     Route: 048
     Dates: start: 20220118, end: 20240515
  2. METHOTREXATE [Suspect]
     Active Substance: METHOTREXATE
     Indication: Acute lymphocytic leukaemia
     Dosage: 50% DOSING
     Route: 048
     Dates: start: 20240516, end: 20240530
  3. MERCAPTOPURINE [Suspect]
     Active Substance: MERCAPTOPURINE
     Indication: Acute lymphocytic leukaemia
     Dosage: 75 MG DAILY MON-SAT;SUN 100 MG
     Route: 048
     Dates: start: 20220118, end: 20240515
  4. MERCAPTOPURINE [Suspect]
     Active Substance: MERCAPTOPURINE
     Indication: Acute lymphocytic leukaemia
     Dosage: 50% DOSING
     Route: 048
     Dates: start: 20240516, end: 20240530
  5. PREDNISOLONE [Suspect]
     Active Substance: PREDNISOLONE
     Indication: Acute lymphocytic leukaemia
     Dosage: 45 MG DAILY IN AM (D1-5,D29-33, D57-61), 40 MG DAILY IN PM (D1-5, D29-33, D57-61)?MILLIGRAM/SQ. M...
     Route: 048
     Dates: start: 20221107
  6. DIFLUCAN [Concomitant]
     Active Substance: FLUCONAZOLE
     Route: 065
     Dates: start: 20240516
  7. RUXOLITINIB [Suspect]
     Active Substance: RUXOLITINIB
     Indication: Acute lymphocytic leukaemia
     Route: 048
     Dates: start: 20220118
  8. VINCRISTINE [Suspect]
     Active Substance: VINCRISTINE
     Indication: Acute lymphocytic leukaemia
     Dosage: D1, D29, D57
     Route: 042
     Dates: start: 20230201

REACTIONS (3)
  - Epistaxis [Recovered/Resolved]
  - Anaemia [Recovered/Resolved with Sequelae]
  - Platelet count decreased [Recovered/Resolved with Sequelae]

NARRATIVE: CASE EVENT DATE: 20240529
